FAERS Safety Report 13041593 (Version 1)
Quarter: 2016Q4

REPORT INFORMATION
  Report Type: Spontaneous
  Country: US (occurrence: US)
  Receive Date: 20161219
  Receipt Date: 20161219
  Transmission Date: 20170207
  Serious: No
  Sender: FDA-Public Use
  Company Number: US-ROCHE-1294210

PATIENT
  Age: 57 Year
  Sex: Male

DRUGS (1)
  1. ZELBORAF [Suspect]
     Active Substance: VEMURAFENIB
     Indication: METASTATIC MALIGNANT MELANOMA
     Route: 065
     Dates: start: 201008, end: 201304

REACTIONS (7)
  - Feeling cold [Unknown]
  - Skin hypertrophy [Unknown]
  - Hair colour changes [Unknown]
  - Alopecia [Unknown]
  - Weight increased [Unknown]
  - Photosensitivity reaction [Unknown]
  - Increased appetite [Unknown]

NARRATIVE: CASE EVENT DATE: 201008
